FAERS Safety Report 9570476 (Version 1)
Quarter: 2013Q4

REPORT INFORMATION
  Report Type: Spontaneous
  Country: US (occurrence: US)
  Receive Date: 20131001
  Receipt Date: 20131001
  Transmission Date: 20140711
  Serious: Yes (Death)
  Sender: FDA-Public Use
  Company Number: US-ROCHE-1283223

PATIENT
  Sex: Male

DRUGS (8)
  1. XELODA [Suspect]
     Indication: GASTROINTESTINAL CARCINOMA
     Dosage: 1500MG DAILY FOR 5 DAYS, POSSIBLY WITH RADIATION
     Route: 065
     Dates: start: 20130829
  2. PREDNISONE [Concomitant]
  3. FENTANYL [Concomitant]
  4. FUROSEMIDE [Concomitant]
  5. MAGNESIUM OXIDE [Concomitant]
  6. MELATONIN [Concomitant]
  7. OXYCODONE [Concomitant]
  8. TRAZODONE [Concomitant]

REACTIONS (1)
  - Death [Fatal]
